FAERS Safety Report 17129093 (Version 1)
Quarter: 2019Q4

REPORT INFORMATION
  Report Type: Spontaneous
  Country: US (occurrence: US)
  Receive Date: 20191209
  Receipt Date: 20191209
  Transmission Date: 20200122
  Serious: Yes (Other)
  Sender: FDA-Public Use
  Company Number: US-ELI_LILLY_AND_COMPANY-US201912000357

PATIENT
  Sex: Male

DRUGS (5)
  1. LEVOTHYROXINE. [Concomitant]
     Active Substance: LEVOTHYROXINE
     Dosage: UNK, UNKNOWN
  2. CIALIS [Suspect]
     Active Substance: TADALAFIL
     Dosage: 40 MG, PRN
     Route: 065
  3. HORNY GOAT WEED [Concomitant]
     Dosage: UNK, UNKNOWN
  4. PREVACID [Concomitant]
     Active Substance: LANSOPRAZOLE
     Dosage: UNK, UNKNOWN
  5. CIALIS [Suspect]
     Active Substance: TADALAFIL
     Indication: PRODUCT USED FOR UNKNOWN INDICATION
     Dosage: 5 MG, DAILY
     Route: 065

REACTIONS (4)
  - Muscular weakness [Unknown]
  - Therapeutic product effect incomplete [Unknown]
  - Intentional overdose [Unknown]
  - Prostate cancer [Unknown]
